FAERS Safety Report 13874158 (Version 12)
Quarter: 2019Q4

REPORT INFORMATION
  Report Type: Spontaneous
  Country: US (occurrence: US)
  Receive Date: 20170816
  Receipt Date: 20191224
  Transmission Date: 20200122
  Serious: Yes (Hospitalization, Other)
  Sender: FDA-Public Use
  Company Number: US-ACTELION-A-NJ2017-157996

PATIENT
  Age: 77 Year
  Sex: Female

DRUGS (47)
  1. OPSUMIT [Suspect]
     Active Substance: MACITENTAN
     Indication: PULMONARY ARTERIAL HYPERTENSION
     Dosage: 10 MG, UNK
     Route: 048
     Dates: start: 20160429
  2. TRAMADOL HCL [Concomitant]
     Active Substance: TRAMADOL HYDROCHLORIDE
  3. BUMEX [Concomitant]
     Active Substance: BUMETANIDE
     Dosage: UNK
     Dates: start: 20170318
  4. ZOFRAN [Concomitant]
     Active Substance: ONDANSETRON HYDROCHLORIDE
     Dosage: UNK
     Dates: start: 20170317
  5. SIMETHICONE (DIMETHICONE) [Concomitant]
     Active Substance: DIMETHICONE
  6. PANTOPRAZOLE [Concomitant]
     Active Substance: PANTOPRAZOLE
  7. COLACE [Concomitant]
     Active Substance: DOCUSATE SODIUM
     Dosage: UNK
     Dates: start: 20170318
  8. TRAMADOL + ACETAMINOFEN [Concomitant]
     Active Substance: ACETAMINOPHEN\TRAMADOL
     Dosage: UNK
     Dates: start: 20170318
  9. ATARAX [Concomitant]
     Active Substance: HYDROXYZINE HYDROCHLORIDE
     Dosage: UNK
     Dates: start: 20170318
  10. NITROSTAT [Concomitant]
     Active Substance: NITROGLYCERIN
     Dosage: UNK
     Dates: start: 20170318
  11. SOLU-MEDROL [Concomitant]
     Active Substance: METHYLPREDNISOLONE SODIUM SUCCINATE
  12. K-DUR [Concomitant]
     Active Substance: POTASSIUM CHLORIDE
  13. AMLODIPINE BESYLATE. [Concomitant]
     Active Substance: AMLODIPINE BESYLATE
  14. ASPIRIN. [Concomitant]
     Active Substance: ASPIRIN
     Dosage: UNK
     Dates: start: 20170318
  15. MUCINEX [Concomitant]
     Active Substance: GUAIFENESIN
  16. SYMBICORT [Concomitant]
     Active Substance: BUDESONIDE\FORMOTEROL FUMARATE DIHYDRATE
  17. VITAMIN D [Concomitant]
     Active Substance: VITAMIN D NOS
  18. ACETAMINOPHEN. [Concomitant]
     Active Substance: ACETAMINOPHEN
     Dosage: UNK
     Dates: start: 20170318
  19. ALBUTEROL. [Concomitant]
     Active Substance: ALBUTEROL
     Dosage: UNK
     Dates: start: 20170318
  20. PRAVASTATIN. [Concomitant]
     Active Substance: PRAVASTATIN
  21. TYLENOL [Concomitant]
     Active Substance: ACETAMINOPHEN
  22. ADAZIN [Concomitant]
     Active Substance: BENZOCAINE\CAPSAICIN\LIDOCAINE\METHYL SALICYLATE
  23. KLOR-CON [Concomitant]
     Active Substance: POTASSIUM CHLORIDE
  24. MYLANTA [Concomitant]
     Active Substance: ALUMINUM HYDROXIDE\DIMETHICONE\MAGNESIUM HYDROXIDE
  25. OMEPRAZOLE. [Concomitant]
     Active Substance: OMEPRAZOLE
  26. PRAVASTATIN SODIUM. [Concomitant]
     Active Substance: PRAVASTATIN SODIUM
  27. LORATADINE. [Concomitant]
     Active Substance: LORATADINE
     Dosage: UNK
     Dates: start: 20170318
  28. ULTRAM [Concomitant]
     Active Substance: TRAMADOL HYDROCHLORIDE
     Dosage: UNK
     Dates: start: 20170318
  29. LINZESS [Concomitant]
     Active Substance: LINACLOTIDE
     Dosage: UNK
     Dates: start: 20181129
  30. METOLAZONE. [Concomitant]
     Active Substance: METOLAZONE
  31. CALCITROL [Concomitant]
  32. ALLOPURINOL. [Concomitant]
     Active Substance: ALLOPURINOL
     Dosage: UNK
  33. MAGNESIUM [Concomitant]
     Active Substance: MAGNESIUM
  34. ROBITUSSIN (GUAIFENESIN) [Concomitant]
     Active Substance: GUAIFENESIN
  35. SIMVASTATIN. [Concomitant]
     Active Substance: SIMVASTATIN
     Dosage: UNK
     Dates: start: 20170318
  36. FORMOTEROL W/MOMETASONE [Concomitant]
     Active Substance: FORMOTEROL\MOMETASONE
  37. GUAIFENESIN. [Concomitant]
     Active Substance: GUAIFENESIN
  38. DRISDOL [Concomitant]
     Active Substance: ERGOCALCIFEROL
     Dosage: UNK
     Dates: start: 20170318
  39. DUONEB [Concomitant]
     Active Substance: ALBUTEROL SULFATE\IPRATROPIUM BROMIDE
     Dosage: UNK
     Dates: start: 20170318
  40. HEPARIN [Concomitant]
     Active Substance: HEPARIN SODIUM
     Dosage: UNK
     Dates: start: 20170318
  41. LORAZEPAM. [Concomitant]
     Active Substance: LORAZEPAM
  42. OMEPRAZOLE AND SODIUM BICARBONATE [Concomitant]
     Active Substance: OMEPRAZOLE\SODIUM BICARBONATE
     Dosage: UNK
     Dates: start: 20170318
  43. BUSPIRONE [Concomitant]
     Active Substance: BUSPIRONE HYDROCHLORIDE
     Dosage: UNK
     Dates: start: 20181129
  44. CETIRIZINE [Concomitant]
     Active Substance: CETIRIZINE HYDROCHLORIDE
     Dosage: UNK
     Dates: start: 20181129
  45. FLAGYL [Concomitant]
     Active Substance: METRONIDAZOLE\METRONIDAZOLE HYDROCHLORIDE
  46. MAALOX ANTACID [Concomitant]
     Active Substance: ALUMINUM HYDROXIDE\DIMETHICONE\MAGNESIUM HYDROXIDE
  47. MIRALAX [Concomitant]
     Active Substance: POLYETHYLENE GLYCOL 3350

REACTIONS (31)
  - Pneumonia [Recovered/Resolved]
  - Lung infiltration [Recovered/Resolved]
  - Swelling [Recovered/Resolved]
  - Productive cough [Recovered/Resolved]
  - Left ventricular failure [Not Recovered/Not Resolved]
  - Colitis [Recovered/Resolved]
  - Waist circumference increased [Recovered/Resolved]
  - Fluid retention [Recovered/Resolved]
  - Chronic sinusitis [Recovered/Resolved]
  - Oedema peripheral [Recovered/Resolved]
  - Blood potassium decreased [Recovered/Resolved]
  - Diarrhoea [Recovered/Resolved]
  - Brain natriuretic peptide increased [Recovered/Resolved]
  - Respiratory acidosis [Recovered/Resolved]
  - Orthopnoea [Not Recovered/Not Resolved]
  - Fatigue [Recovered/Resolved]
  - Atelectasis [Recovered/Resolved]
  - Renal failure [Recovered/Resolved]
  - Chronic obstructive pulmonary disease [Recovered/Resolved]
  - Cardiac failure congestive [Recovered/Resolved]
  - Abdominal discomfort [Recovered/Resolved]
  - Pulmonary congestion [Not Recovered/Not Resolved]
  - Hypokalaemia [Recovered/Resolved]
  - Dehydration [Recovered/Resolved]
  - Deafness [Unknown]
  - Acute sinusitis [Recovered/Resolved]
  - Asthenia [Unknown]
  - Abdominal distension [Recovered/Resolved]
  - Dyspnoea [Not Recovered/Not Resolved]
  - Wheezing [Recovered/Resolved]
  - Dysphagia [Recovered/Resolved]

NARRATIVE: CASE EVENT DATE: 201609
